FAERS Safety Report 7440075-9 (Version None)
Quarter: 2011Q2

REPORT INFORMATION
  Report Type: 
  Country: None (occurrence: None)
  Receive Date: 20110427
  Receipt Date: 20110420
  Transmission Date: 20111010
  Serious: Yes (Death, Hospitalization, Other)
  Sender: FDA-Public Use
  Company Number: JP-ROCHE-710179

PATIENT
  Sex: Female
  Weight: 40 kg

DRUGS (3)
  1. CARBOPLATIN [Suspect]
     Indication: ADENOSQUAMOUS CELL LUNG CANCER
     Dosage: NOTE: DOSAGE IS UNCERTAIN.
     Route: 041
     Dates: start: 20091209, end: 20100702
  2. AVASTIN [Suspect]
     Indication: ADENOSQUAMOUS CELL LUNG CANCER
     Route: 041
     Dates: start: 20091209, end: 20100702
  3. PACLITAXEL [Suspect]
     Indication: ADENOSQUAMOUS CELL LUNG CANCER
     Dosage: NOTE: DOSAGE IS UNCERTAIN.
     Route: 041
     Dates: start: 20091209, end: 20100702

REACTIONS (6)
  - ACUTE RESPIRATORY FAILURE [None]
  - ABDOMINAL PAIN [None]
  - WHITE BLOOD CELL COUNT DECREASED [None]
  - PLATELET COUNT DECREASED [None]
  - SMALL INTESTINAL PERFORATION [None]
  - METASTASES TO SMALL INTESTINE [None]
